FAERS Safety Report 15015793 (Version 2)
Quarter: 2018Q2

REPORT INFORMATION
  Report Type: Report from Study
  Country: US (occurrence: US)
  Receive Date: 20180615
  Receipt Date: 20180618
  Transmission Date: 20180711
  Serious: Yes (Life-Threatening, Hospitalization)
  Sender: FDA-Public Use
  Company Number: US-EISAI MEDICAL RESEARCH-EC-2018-041246

PATIENT
  Age: 57 Year
  Sex: Female
  Weight: 60.1 kg

DRUGS (5)
  1. COZAAR [Concomitant]
     Active Substance: LOSARTAN POTASSIUM
  2. ASA [Concomitant]
     Active Substance: ASPIRIN
  3. PROZAC [Concomitant]
     Active Substance: FLUOXETINE HYDROCHLORIDE
  4. ERIBULIN [Suspect]
     Active Substance: ERIBULIN
     Indication: BREAST CANCER STAGE IV
     Route: 041
     Dates: start: 20180529, end: 201806
  5. INSULIN PUMP LISPRO [Concomitant]

REACTIONS (2)
  - Febrile neutropenia [Recovering/Resolving]
  - Mucosal inflammation [Not Recovered/Not Resolved]

NARRATIVE: CASE EVENT DATE: 20180612
